FAERS Safety Report 8107966-7 (Version None)
Quarter: 2012Q1

REPORT INFORMATION
  Report Type: 
  Country: None (occurrence: None)
  Receive Date: 20120202
  Receipt Date: 20120127
  Transmission Date: 20120608
  Serious: Yes (Death)
  Sender: FDA-Public Use
  Company Number: CO-ROXANE LABORATORIES, INC.-2012-RO-00565RO

PATIENT
  Age: 45 Year
  Sex: Female

DRUGS (2)
  1. METHOTREXATE [Suspect]
     Indication: PSORIATIC ARTHROPATHY
     Route: 048
     Dates: start: 20090501
  2. FOLIC ACID [Suspect]
     Indication: PSORIATIC ARTHROPATHY
     Dosage: 1 MG
     Dates: start: 20090501

REACTIONS (1)
  - PULMONARY TOXICITY [None]
